FAERS Safety Report 21113345 (Version 1)
Quarter: 2022Q3

REPORT INFORMATION
  Report Type: Spontaneous
  Country: US (occurrence: None)
  Receive Date: 20220721
  Receipt Date: 20220721
  Transmission Date: 20221026
  Serious: No
  Sender: FDA-Public Use
  Company Number: None

PATIENT
  Age: 51 Year
  Sex: Female
  Weight: 81 kg

DRUGS (1)
  1. MAGNESIUM CITRATE LEMON [Suspect]
     Active Substance: MAGNESIUM CITRATE
     Indication: Colonoscopy
     Dosage: OTHER QUANTITY : 10 OUNCE(S);?OTHER FREQUENCY : USED ONCE;?
     Route: 048
     Dates: start: 20211215, end: 20211215

REACTIONS (7)
  - Rectal haemorrhage [None]
  - Colitis [None]
  - Secretion discharge [None]
  - Decreased appetite [None]
  - Diarrhoea [None]
  - Recalled product [None]
  - Dyspepsia [None]

NARRATIVE: CASE EVENT DATE: 20211201
